FAERS Safety Report 15925074 (Version 2)
Quarter: 2019Q2

REPORT INFORMATION
  Report Type: Spontaneous
  Country: DE (occurrence: DE)
  Receive Date: 20190206
  Receipt Date: 20190411
  Transmission Date: 20190711
  Serious: Yes (Other)
  Sender: FDA-Public Use
  Company Number: DE-BIOGEN-2019BI00692177

PATIENT
  Age: 38 Year
  Sex: Female
  Weight: 71 kg

DRUGS (1)
  1. TECFIDERA [Suspect]
     Active Substance: DIMETHYL FUMARATE
     Indication: MULTIPLE SCLEROSIS
     Dosage: DAILY DOSE: 480 MG MILLGRAM(S) EVERY DAYS
     Route: 048
     Dates: start: 20181001

REACTIONS (2)
  - Groin abscess [Recovered/Resolved]
  - Abscess limb [Recovered/Resolved]

NARRATIVE: CASE EVENT DATE: 20190110
